FAERS Safety Report 8059718-4 (Version None)
Quarter: 2012Q1

REPORT INFORMATION
  Report Type: 
  Country: None (occurrence: None)
  Receive Date: 20120120
  Receipt Date: 20110825
  Transmission Date: 20120608
  Serious: Yes (Death, Congenital Anomaly)
  Sender: FDA-Public Use
  Company Number: MX-SANOFI-AVENTIS-2012SA003352

PATIENT
  Sex: Male

DRUGS (3)
  1. ENOXAPARIN SODIUM [Suspect]
     Route: 064
     Dates: start: 20080101
  2. PLAQUENIL [Suspect]
     Route: 064
     Dates: start: 20010101
  3. PREDNISONE TAB [Suspect]
     Route: 064
     Dates: start: 19981101

REACTIONS (2)
  - OESOPHAGEAL ATRESIA [None]
  - FOETAL EXPOSURE DURING PREGNANCY [None]
